FAERS Safety Report 16986551 (Version 1)
Quarter: 2019Q4

REPORT INFORMATION
  Report Type: Spontaneous
  Country: US (occurrence: US)
  Receive Date: 20190918
  Receipt Date: 20190918
  Transmission Date: 20200122
  Serious: Yes (Other)
  Sender: FDA-Public Use
  Company Number: None

PATIENT
  Age: 33 Year
  Sex: Female

DRUGS (1)
  1. ILARIS [Suspect]
     Active Substance: CANAKINUMAB
     Indication: AMYLOIDOSIS
     Route: 058
     Dates: start: 20190530

REACTIONS (4)
  - Menorrhagia [None]
  - Pelvic pain [None]
  - Menstrual disorder [None]
  - Abdominal pain upper [None]

NARRATIVE: CASE EVENT DATE: 201908
